FAERS Safety Report 5830523-X (Version None)
Quarter: 2008Q3

REPORT INFORMATION
  Report Type: 
  Country: None (occurrence: None)
  Receive Date: 20080801
  Receipt Date: 20070625
  Transmission Date: 20090109
  Serious: No
  Sender: FDA-Public Use
  Company Number: US-BRISTOL-MYERS SQUIBB COMPANY-13825468

PATIENT
  Sex: Female

DRUGS (5)
  1. COUMADIN [Suspect]
     Indication: HEART VALVE REPLACEMENT
     Dosage: 7.5MG DAILY FOR 5 DAYS AND 5MG DAILY FOR 2 DAYS, CHANGED TO 7.5MG DAILY FOR THE NEXT WEEK
     Dates: start: 19910901
  2. TRAMADOL HCL [Concomitant]
  3. VYTORIN [Concomitant]
  4. SYNTHROID [Concomitant]
  5. TYLENOL [Concomitant]

REACTIONS (1)
  - INTERNATIONAL NORMALISED RATIO DECREASED [None]
